FAERS Safety Report 9213906 (Version 2)
Quarter: 2013Q2

REPORT INFORMATION
  Report Type: Spontaneous
  Country: DK (occurrence: IE)
  Receive Date: 20130405
  Receipt Date: 20130531
  Transmission Date: 20140414
  Serious: Yes (Other)
  Sender: FDA-Public Use
  Company Number: IE-FRI-1000044029

PATIENT
  Sex: Female

DRUGS (2)
  1. LEXAPRO [Suspect]
     Indication: DEPRESSION
     Route: 048
  2. LEXAPRO [Suspect]
     Indication: ANXIETY
     Dosage: 10 MG

REACTIONS (2)
  - Withdrawal syndrome [Recovered/Resolved]
  - Abdominal discomfort [Recovered/Resolved]
